FAERS Safety Report 4720296-6 (Version None)
Quarter: 2005Q3

REPORT INFORMATION
  Report Type: 
  Country: None (occurrence: None)
  Receive Date: 20050719
  Receipt Date: 20050628
  Transmission Date: 20060218
  Serious: Yes (Hospitalization, Other)
  Sender: FDA-Public Use
  Company Number: FRWYE780928JUN05

PATIENT
  Age: 74 Year
  Sex: Female

DRUGS (3)
  1. BISOPROLOL FUMARATE [Suspect]
     Indication: ESSENTIAL HYPERTENSION
     Dosage: 1 TABLET 1X PER 1 DAY ORAL
     Route: 048
     Dates: end: 20050410
  2. BISOPROLOL FUMARATE [Suspect]
     Indication: ESSENTIAL HYPERTENSION
     Dosage: 1 TABLET 1X PER 1 DAY ORAL
     Route: 048
     Dates: start: 20050101
  3. MODURETIC 5-50 [Concomitant]

REACTIONS (2)
  - CONDITION AGGRAVATED [None]
  - PUSTULAR PSORIASIS [None]
